FAERS Safety Report 8152658-1 (Version None)
Quarter: 2012Q1

REPORT INFORMATION
  Report Type: 
  Country: None (occurrence: None)
  Receive Date: 20120221
  Receipt Date: 20120209
  Transmission Date: 20120608
  Serious: Yes (Hospitalization)
  Sender: FDA-Public Use
  Company Number: PHHY2012IT011272

PATIENT
  Sex: Male

DRUGS (3)
  1. ALPRAZOLAM [Suspect]
     Indication: SELF INJURIOUS BEHAVIOUR
     Dosage: 4 MG, (TOTAL DOSE)
     Route: 048
     Dates: start: 20110726, end: 20110726
  2. VENLAFAXINE [Suspect]
     Indication: SELF INJURIOUS BEHAVIOUR
     Dosage: 1500 MG (TOTAL DOSE)
     Route: 048
     Dates: start: 20110726, end: 20110726
  3. RISPERDAL [Suspect]
     Indication: SELF INJURIOUS BEHAVIOUR
     Dosage: 60 MG, (TOTAL DOSE)
     Route: 048
     Dates: start: 20110726, end: 20110726

REACTIONS (6)
  - OXYGEN SATURATION DECREASED [None]
  - SELF INJURIOUS BEHAVIOUR [None]
  - INCORRECT DOSE ADMINISTERED [None]
  - COMA SCALE ABNORMAL [None]
  - BLOOD PRESSURE DECREASED [None]
  - HEART RATE INCREASED [None]
